FAERS Safety Report 20080479 (Version 1)
Quarter: 2021Q4

REPORT INFORMATION
  Report Type: Spontaneous
  Country: US (occurrence: None)
  Receive Date: 20211116
  Receipt Date: 20211116
  Transmission Date: 20220303
  Serious: Yes (Death)
  Sender: FDA-Public Use
  Company Number: None

PATIENT
  Age: 55 Year
  Sex: Female

DRUGS (9)
  1. LOKELMA [Suspect]
     Active Substance: SODIUM ZIRCONIUM CYCLOSILICATE
     Indication: Hyperkalaemia
     Dosage: FREQUENCY : DAILY;?
     Route: 048
     Dates: start: 20201201, end: 20211104
  2. TACROLIMUS [Concomitant]
     Active Substance: TACROLIMUS
  3. OMEPRAZOLE [Concomitant]
     Active Substance: OMEPRAZOLE
  4. TAMSULOSIN [Concomitant]
     Active Substance: TAMSULOSIN
  5. MYCOPHENOLIC ACID [Concomitant]
     Active Substance: MYCOPHENOLIC ACID
  6. levothyroxine 0.150mg [Concomitant]
  7. FLUCONAZOLE [Concomitant]
     Active Substance: FLUCONAZOLE
  8. PREDNISONE [Concomitant]
     Active Substance: PREDNISONE
  9. METOPROLOL SUCCINATE [Concomitant]
     Active Substance: METOPROLOL SUCCINATE

REACTIONS (1)
  - Death [None]

NARRATIVE: CASE EVENT DATE: 20211104
